FAERS Safety Report 9142986 (Version 1)
Quarter: 2013Q1

REPORT INFORMATION
  Report Type: Spontaneous
  Country: US (occurrence: US)
  Receive Date: 20130306
  Receipt Date: 20130306
  Transmission Date: 20140127
  Serious: No
  Sender: FDA-Public Use
  Company Number: US-PFIZER INC-2013075146

PATIENT
  Age: 23 Year
  Sex: Male
  Weight: 72.56 kg

DRUGS (1)
  1. CELECOXIB [Suspect]
     Indication: LIGAMENT SPRAIN
     Dosage: 200 MG, 1X/DAY
     Route: 048
     Dates: start: 20130228, end: 20130301

REACTIONS (4)
  - Swelling face [Not Recovered/Not Resolved]
  - Ear swelling [Not Recovered/Not Resolved]
  - Sunburn [Not Recovered/Not Resolved]
  - Pruritus [Not Recovered/Not Resolved]
